FAERS Safety Report 21586803 (Version 4)
Quarter: 2022Q4

REPORT INFORMATION
  Report Type: Spontaneous
  Country: US (occurrence: US)
  Receive Date: 20221113
  Receipt Date: 20221128
  Transmission Date: 20230112
  Serious: No
  Sender: FDA-Public Use
  Company Number: US-AMGEN-USASP2022194570

PATIENT
  Age: 60 Year
  Sex: Female
  Weight: 74.3 kg

DRUGS (2)
  1. NEULASTA [Suspect]
     Active Substance: PEGFILGRASTIM
     Indication: Prophylaxis
     Dosage: 6 MILLIGRAM
     Route: 058
     Dates: start: 20221026
  2. NEULASTA [Suspect]
     Active Substance: PEGFILGRASTIM
     Dosage: 6 MILLIGRAM
     Route: 058
     Dates: start: 20221026

REACTIONS (2)
  - Wrong technique in product usage process [Unknown]
  - Application site discomfort [Recovered/Resolved]

NARRATIVE: CASE EVENT DATE: 20221108
